FAERS Safety Report 6399412-9 (Version None)
Quarter: 2009Q4

REPORT INFORMATION
  Report Type: 
  Country: None (occurrence: None)
  Receive Date: 20091014
  Receipt Date: 20091009
  Transmission Date: 20100525
  Serious: Yes (Hospitalization)
  Sender: FDA-Public Use
  Company Number: US-JNJFOC-20091002842

PATIENT
  Age: 9 Month
  Sex: Female
  Weight: 9.98 kg

DRUGS (2)
  1. TYLENOL [Suspect]
     Route: 048
     Dates: end: 20090901
  2. TYLENOL [Suspect]
     Indication: PYREXIA
     Dosage: UNSPECIFIED DOSE EVERY 6 TO 8 HOURS
     Route: 048
     Dates: end: 20090901

REACTIONS (3)
  - BACTERIAL INFECTION [None]
  - SCARLET FEVER [None]
  - TRANSMISSION OF AN INFECTIOUS AGENT VIA A MEDICINAL PRODUCT [None]
